FAERS Safety Report 11462235 (Version 1)
Quarter: 2015Q3

REPORT INFORMATION
  Report Type: Spontaneous
  Country: US (occurrence: US)
  Receive Date: 20150831
  Receipt Date: 20150831
  Transmission Date: 20151125
  Serious: No
  Sender: FDA-Public Use
  Company Number: US-ELI_LILLY_AND_COMPANY-US201010004867

PATIENT
  Sex: Female

DRUGS (5)
  1. CETRIZINE [Concomitant]
     Active Substance: CETIRIZINE HYDROCHLORIDE
  2. CYMBALTA [Suspect]
     Active Substance: DULOXETINE HYDROCHLORIDE
     Dosage: 60 MG, DAILY (1/D)
     Dates: start: 20101013, end: 20101014
  3. PERCOCET [Concomitant]
     Active Substance: ACETAMINOPHEN\OXYCODONE HYDROCHLORIDE
  4. CYMBALTA [Suspect]
     Active Substance: DULOXETINE HYDROCHLORIDE
     Indication: FIBROMYALGIA
     Dosage: 30 MG, DAILY (1/D)
     Dates: start: 201009, end: 20101012
  5. VITAMINS [Concomitant]
     Active Substance: VITAMINS

REACTIONS (15)
  - Musculoskeletal stiffness [Unknown]
  - Drug withdrawal syndrome [Unknown]
  - Diarrhoea [Unknown]
  - Bruxism [Unknown]
  - Nightmare [Unknown]
  - Discomfort [Unknown]
  - Burning sensation [Unknown]
  - Drug ineffective [Recovered/Resolved]
  - Oral disorder [Unknown]
  - Speech disorder [Unknown]
  - Muscle rigidity [Unknown]
  - Hyperhidrosis [Unknown]
  - Salivary gland enlargement [Unknown]
  - Cough [Unknown]
  - Hypersensitivity [Unknown]
